FAERS Safety Report 7979478-2 (Version None)
Quarter: 2011Q4

REPORT INFORMATION
  Report Type: 
  Country: None (occurrence: None)
  Receive Date: 20111214
  Receipt Date: 20111212
  Transmission Date: 20120403
  Serious: Yes (Life-Threatening)
  Sender: FDA-Public Use
  Company Number: PHHY2011DE108062

PATIENT
  Sex: Male
  Weight: 17 kg

DRUGS (2)
  1. EXJADE [Suspect]
     Dosage: 500 MG, DAILY
     Route: 048
     Dates: end: 20111124
  2. DESFERAL [Suspect]
     Dosage: EVERY 3 WEEKS FOR 4 TO 5 DAYS
     Route: 042
     Dates: end: 20111124

REACTIONS (3)
  - HELICOBACTER TEST POSITIVE [None]
  - METABOLIC ACIDOSIS [None]
  - DUODENAL ULCER HAEMORRHAGE [None]
